FAERS Safety Report 21163489 (Version 5)
Quarter: 2023Q1

REPORT INFORMATION
  Report Type: Spontaneous
  Country: CA (occurrence: CA)
  Receive Date: 20220802
  Receipt Date: 20230110
  Transmission Date: 20230417
  Serious: Yes (Other)
  Sender: FDA-Public Use
  Company Number: CA-ANIPHARMA-2022-CA-001546

PATIENT
  Age: 55 Year
  Sex: Female

DRUGS (10)
  1. CANDESARTAN CILEXETIL [Suspect]
     Active Substance: CANDESARTAN CILEXETIL
     Indication: Migraine
     Dosage: 8 MG UNK / 16 MG UNK / 8 MG UNK / 8 MG UNK / 16 MG UNK / 16 MG UNK / 8 MG UNK / 16 MG UNK / 8 MG
     Route: 048
     Dates: start: 20200210
  2. ERENUMAB-AOOE [Suspect]
     Active Substance: ERENUMAB-AOOE
     Dosage: 140 MG MONTH
     Route: 065
  3. AIMOVIG [Suspect]
     Active Substance: ERENUMAB-AOOE
     Dosage: 140 MG MONTH / 140 MG MONTH
     Route: 058
     Dates: start: 20200210
  4. FLUOXETINE HYDROCHLORIDE [Suspect]
     Active Substance: FLUOXETINE HYDROCHLORIDE
     Dosage: 20 MG UNK
     Route: 065
     Dates: start: 20200210
  5. PANTOPRAZOLE [Suspect]
     Active Substance: PANTOPRAZOLE
     Dosage: 40 MG BID
     Route: 065
     Dates: start: 20200210
  6. TOPIRAMATE [Suspect]
     Active Substance: TOPIRAMATE
     Route: 065
     Dates: start: 20200210
  7. FERROUS FUMARATE [Concomitant]
     Active Substance: FERROUS FUMARATE
     Dosage: 300 MG UNK
     Route: 065
  8. MODAFINIL [Concomitant]
     Active Substance: MODAFINIL
     Dosage: 100 MG BID
     Route: 065
  9. NAPROXEN [Concomitant]
     Active Substance: NAPROXEN
     Route: 065
  10. OSTO-D2 [Concomitant]
     Dosage: 1 DF WEEK
     Route: 065

REACTIONS (14)
  - Blood pressure measurement [Unknown]
  - Nausea [Unknown]
  - Pain of skin [Unknown]
  - Photophobia [Unknown]
  - Swelling face [Unknown]
  - Therapeutic product effect decreased [Unknown]
  - Off label use [Unknown]
  - Drug intolerance [Unknown]
  - Dysstasia [Unknown]
  - Eye pain [Unknown]
  - Headache [Unknown]
  - Heart rate abnormal [Unknown]
  - Hypertension [Unknown]
  - Hypoaesthesia oral [Unknown]
